FAERS Safety Report 22017084 (Version 1)
Quarter: 2023Q1

REPORT INFORMATION
  Report Type: Spontaneous
  Country: CN (occurrence: CN)
  Receive Date: 20230221
  Receipt Date: 20230221
  Transmission Date: 20230418
  Serious: Yes (Life-Threatening)
  Sender: FDA-Public Use
  Company Number: None

PATIENT
  Age: 77 Year
  Sex: Male
  Weight: 48 kg

DRUGS (2)
  1. MANNITOL [Suspect]
     Active Substance: MANNITOL
     Indication: Reduction of increased intracranial pressure
     Dosage: 100 MILLILITERS (ML) 4 TIMES DAILY (Q6H)
     Route: 041
     Dates: start: 20221224, end: 20221229
  2. FUROSEMIDE [Suspect]
     Active Substance: FUROSEMIDE
     Indication: Brain contusion
     Dosage: 10 MG MICROPUMP INTRAVENOUS PUSH, 20 MILLIGRAMS (MG) ONCE DAILY
     Route: 042
     Dates: start: 20221226, end: 20221226

REACTIONS (1)
  - Blood potassium decreased [Recovering/Resolving]

NARRATIVE: CASE EVENT DATE: 20221227
